FAERS Safety Report 5092897-X (Version None)
Quarter: 2006Q3

REPORT INFORMATION
  Report Type: 
  Country: None (occurrence: None)
  Receive Date: 20060727
  Receipt Date: 20060331
  Transmission Date: 20061208
  Serious: Yes (Life-Threatening, Hospitalization, Other)
  Sender: FDA-Public Use
  Company Number: 2006015029

PATIENT
  Age: 72 Year
  Sex: Female
  Weight: 86.637 kg

DRUGS (1)
  1. LYRICA [Suspect]
     Indication: NEUROPATHY PERIPHERAL
     Dosage: 150 MG (50 MG,3 IN 1 D),ORAL
     Route: 048
     Dates: start: 20051109, end: 20051111

REACTIONS (3)
  - HYPERSENSITIVITY [None]
  - SYNCOPE [None]
  - URTICARIA [None]
